FAERS Safety Report 5836223-4 (Version None)
Quarter: 2008Q3

REPORT INFORMATION
  Report Type: 
  Country: None (occurrence: None)
  Receive Date: 20080806
  Receipt Date: 20080410
  Transmission Date: 20090109
  Serious: Yes (Hospitalization, Other)
  Sender: FDA-Public Use
  Company Number: US-ELI_LILLY_AND_COMPANY-US200804003027

PATIENT
  Sex: Female

DRUGS (1)
  1. HUMATROPE [Suspect]
     Indication: BODY HEIGHT BELOW NORMAL
     Dosage: 1 MG, DAILY (1/D)
     Dates: start: 20070530, end: 20070801

REACTIONS (2)
  - GLOMERULONEPHRITIS [None]
  - SYSTEMIC LUPUS ERYTHEMATOSUS [None]
